FAERS Safety Report 12970679 (Version 1)
Quarter: 2016Q4

REPORT INFORMATION
  Report Type: Spontaneous
  Country: DE (occurrence: DE)
  Receive Date: 20161123
  Receipt Date: 20161123
  Transmission Date: 20170207
  Serious: Yes (Other)
  Sender: FDA-Public Use
  Company Number: DE-MYLANLABS-2016M1050344

PATIENT

DRUGS (8)
  1. LEPONEX [Suspect]
     Active Substance: CLOZAPINE
     Dosage: 25 MG, UNK
     Route: 048
     Dates: start: 20160622
  2. ZYPREXA [Concomitant]
     Active Substance: OLANZAPINE
     Indication: PRODUCT USED FOR UNKNOWN INDICATION
     Dosage: UNK
     Route: 048
     Dates: start: 20160507
  3. LEPONEX [Suspect]
     Active Substance: CLOZAPINE
     Dosage: 37.5 MG, UNK
     Route: 048
     Dates: start: 20160623
  4. LEPONEX [Suspect]
     Active Substance: CLOZAPINE
     Dosage: 100 MG, PM
     Route: 048
     Dates: start: 20160706, end: 20160707
  5. LEPONEX [Suspect]
     Active Substance: CLOZAPINE
     Dosage: 75 MG, UNK
     Route: 048
     Dates: start: 20160630, end: 20160705
  6. VITAMIN B12 [Concomitant]
     Active Substance: CYANOCOBALAMIN
     Indication: PRODUCT USED FOR UNKNOWN INDICATION
     Dosage: 1 MG, UNK
     Route: 048
     Dates: start: 20160509
  7. LEPONEX [Suspect]
     Active Substance: CLOZAPINE
     Indication: SCHIZOPHRENIA
     Dosage: 12.5 MG, UNK
     Route: 048
     Dates: start: 20160621
  8. LEPONEX [Suspect]
     Active Substance: CLOZAPINE
     Dosage: 50 MG, UNK
     Route: 048
     Dates: start: 20160624, end: 20160929

REACTIONS (4)
  - Pericarditis [Recovering/Resolving]
  - Myocarditis [Recovering/Resolving]
  - Hypotension [Unknown]
  - Dizziness [Recovering/Resolving]

NARRATIVE: CASE EVENT DATE: 20160706
